FAERS Safety Report 6914559-3 (Version None)
Quarter: 2010Q3

REPORT INFORMATION
  Report Type: 
  Country: None (occurrence: None)
  Receive Date: 20100809
  Receipt Date: 20100728
  Transmission Date: 20110219
  Serious: Yes (Other)
  Sender: FDA-Public Use
  Company Number: JP-PFIZER INC-2010094920

PATIENT
  Age: 85 Year
  Sex: Female

DRUGS (12)
  1. LYRICA [Suspect]
     Dosage: UNK
     Route: 048
     Dates: start: 20100714, end: 20100728
  2. LYRICA [Suspect]
     Dosage: UNK
     Route: 048
     Dates: start: 20100714, end: 20100728
  3. ASPIRIN [Concomitant]
     Dosage: UNK
     Route: 048
  4. LIPITOR [Concomitant]
     Dosage: UNK
     Route: 048
  5. OMEPRAL [Concomitant]
     Dosage: UNK
     Route: 048
  6. NU LOTAN [Concomitant]
     Dosage: UNK
     Route: 048
  7. AMARYL [Concomitant]
     Dosage: UNK
     Route: 048
  8. GANATON [Concomitant]
     Dosage: UNK
     Route: 048
  9. MUCOSOLVAN [Concomitant]
     Dosage: UNK
     Route: 048
  10. GASTROM [Concomitant]
     Dosage: UNK
     Route: 048
  11. MYSLEE [Concomitant]
     Dosage: UNK
     Route: 048
  12. LANIRAPID [Concomitant]
     Dosage: UNK
     Route: 048

REACTIONS (1)
  - CONVULSION [None]
